FAERS Safety Report 20016544 (Version 1)
Quarter: 2021Q4

REPORT INFORMATION
  Report Type: Spontaneous
  Country: US (occurrence: None)
  Receive Date: 20211104
  Receipt Date: 20211104
  Transmission Date: 20220304
  Serious: Yes (Hospitalization)
  Sender: FDA-Public Use
  Company Number: None

PATIENT
  Age: 66 Year
  Sex: Female

DRUGS (1)
  1. FORTEO [Suspect]
     Active Substance: TERIPARATIDE
     Indication: Osteoporotic fracture
     Dosage: OTHER STRENGTH : 600MCG/2.4ML;?OTHER QUANTITY : 0.08ML (20MCG);?FREQUENCY : DAILY;?
     Route: 058
     Dates: start: 20180724

REACTIONS (2)
  - Therapy interrupted [None]
  - Blood glucose abnormal [None]

NARRATIVE: CASE EVENT DATE: 20210201
